FAERS Safety Report 7799943 (Version 3)
Quarter: 2013Q4

REPORT INFORMATION
  Report Type: Spontaneous
  Country: FR (occurrence: FR)
  Receive Date: 20110204
  Receipt Date: 20131016
  Transmission Date: 20140711
  Serious: Yes (Hospitalization)
  Sender: FDA-Public Use
  Company Number: FR-PFIZER INC-2011025671

PATIENT
  Age: 70 Year
  Sex: Female

DRUGS (2)
  1. ATARAX [Suspect]
     Indication: ANXIETY
     Dosage: 25 MG OR 12.5 MG DAILY
     Route: 048
  2. ATARAX [Suspect]
     Indication: HYPERSENSITIVITY

REACTIONS (1)
  - Aortic dilatation [Not Recovered/Not Resolved]
